FAERS Safety Report 16755296 (Version 1)
Quarter: 2019Q3

REPORT INFORMATION
  Report Type: Spontaneous
  Country: US (occurrence: US)
  Receive Date: 20190829
  Receipt Date: 20190829
  Transmission Date: 20191005
  Serious: Yes (Hospitalization, Other)
  Sender: FDA-Public Use
  Company Number: US-MYLANLABS-2019M1081506

PATIENT
  Age: 32 Year
  Sex: Male

DRUGS (1)
  1. METHADONE [Suspect]
     Active Substance: METHADONE HYDROCHLORIDE
     Indication: PRODUCT USED FOR UNKNOWN INDICATION
     Route: 048

REACTIONS (5)
  - Rhabdomyolysis [Recovering/Resolving]
  - Drug abuse [Recovering/Resolving]
  - Paralysis [Recovering/Resolving]
  - Compartment syndrome [Recovering/Resolving]
  - Brachial plexus injury [Recovering/Resolving]
